FAERS Safety Report 19548254 (Version 3)
Quarter: 2021Q3

REPORT INFORMATION
  Report Type: Spontaneous
  Country: US (occurrence: US)
  Receive Date: 20210714
  Receipt Date: 20210730
  Transmission Date: 20211014
  Serious: Yes (Death, Hospitalization, Other)
  Sender: FDA-Public Use
  Company Number: US-AMGEN-USASP2021106568

PATIENT
  Age: 44 Year
  Sex: Female
  Weight: 81.63 kg

DRUGS (2)
  1. HUMIRA [Concomitant]
     Active Substance: ADALIMUMAB
     Indication: COLITIS ULCERATIVE
     Dosage: 40 MILLIGRAM, QWK
     Route: 058
     Dates: start: 2016, end: 2017
  2. ENBREL [Suspect]
     Active Substance: ETANERCEPT
     Indication: PRODUCT USED FOR UNKNOWN INDICATION
     Dosage: UNK
     Route: 058
     Dates: start: 2017

REACTIONS (7)
  - Renal failure [Unknown]
  - Septic shock [Fatal]
  - Infection [Unknown]
  - Decreased appetite [Unknown]
  - Cardiac failure [Unknown]
  - Hypotension [Unknown]
  - Buttock injury [Unknown]

NARRATIVE: CASE EVENT DATE: 2017
